FAERS Safety Report 14128767 (Version 2)
Quarter: 2017Q4

REPORT INFORMATION
  Report Type: Spontaneous
  Country: CH (occurrence: CH)
  Receive Date: 20171026
  Receipt Date: 20171114
  Transmission Date: 20180321
  Serious: Yes (Other)
  Sender: FDA-Public Use
  Company Number: CH-ENDO PHARMACEUTICALS INC-2017-005558

PATIENT
  Age: 44 Year
  Sex: Male

DRUGS (4)
  1. AVEED [Suspect]
     Active Substance: TESTOSTERONE UNDECANOATE
     Dosage: 1000 MG, EVERY 3 MONTHS REGIMEN #3
     Route: 030
     Dates: start: 20170612
  2. AVEED [Suspect]
     Active Substance: TESTOSTERONE UNDECANOATE
     Indication: TESTIS CANCER
     Dosage: 1000 MG, EVERY 3 MONTHS REGIMEN #1
     Route: 030
     Dates: start: 20161212
  3. AVEED [Suspect]
     Active Substance: TESTOSTERONE UNDECANOATE
     Dosage: 1000 MG, EVERY 3 MONTHS REGIMEN #4
     Route: 030
     Dates: start: 20170911, end: 20170911
  4. AVEED [Suspect]
     Active Substance: TESTOSTERONE UNDECANOATE
     Dosage: 1000 MG, EVERY 3 MONTHS REGIMEN #2
     Route: 030
     Dates: start: 20170314

REACTIONS (6)
  - Burning sensation [Recovered/Resolved]
  - Cough [Recovered/Resolved]
  - Erythema [Recovered/Resolved]
  - Hypersensitivity [Unknown]
  - Dyspnoea [Recovered/Resolved]
  - Off label use [Recovered/Resolved]

NARRATIVE: CASE EVENT DATE: 20161212
